FAERS Safety Report 10631748 (Version 1)
Quarter: 2014Q4

REPORT INFORMATION
  Report Type: Spontaneous
  Country: GB (occurrence: None)
  Receive Date: 20141203
  Receipt Date: 20141203
  Transmission Date: 20150529
  Serious: Yes (Hospitalization)
  Sender: FDA-Public Use
  Company Number: FK201405638

PATIENT
  Age: 71 Year
  Sex: Male
  Weight: 60.7 kg

DRUGS (3)
  1. FLUOROURACIL (FLUOROURACIL) (FLUOROURACIL) [Suspect]
     Active Substance: FLUOROURACIL
     Indication: RECTAL CANCER METASTATIC
     Dosage: NOT OTHERWISE SPECIFIED
     Route: 042
     Dates: start: 20141024
  2. OXALIPLATIN (MANUFACTURER UNKNOWN) (OXALIPLATIN) (OXALIPLATIN) [Suspect]
     Active Substance: OXALIPLATIN
     Indication: RECTAL CANCER METASTATIC
     Dosage: NOTHER OTHERWISE SPECIFIED
     Route: 042
     Dates: start: 20141024
  3. METFORMIN [Concomitant]
     Active Substance: METFORMIN HYDROCHLORIDE

REACTIONS (4)
  - Dizziness [None]
  - Orthostatic hypotension [None]
  - Mucosal inflammation [None]
  - Blood glucose increased [None]

NARRATIVE: CASE EVENT DATE: 20141024
